FAERS Safety Report 21342240 (Version 1)
Quarter: 2022Q3

REPORT INFORMATION
  Report Type: Spontaneous
  Country: US (occurrence: None)
  Receive Date: 20220916
  Receipt Date: 20220916
  Transmission Date: 20221026
  Serious: Yes (Hospitalization)
  Sender: FDA-Public Use
  Company Number: None

PATIENT
  Sex: Male
  Weight: 63.8 kg

DRUGS (5)
  1. CARBOPLATIN [Suspect]
     Active Substance: CARBOPLATIN
     Dates: end: 20180210
  2. ETOPOSIDE [Suspect]
     Active Substance: ETOPOSIDE
     Dates: end: 20180210
  3. FILGRASTIM [Suspect]
     Active Substance: FILGRASTIM
     Dosage: OTHER QUANTITY : 3 MILLION IU;?
     Dates: end: 20180228
  4. IFOSFAMIDE [Suspect]
     Active Substance: IFOSFAMIDE
     Dates: end: 20180121
  5. TAXOL [Suspect]
     Active Substance: PACLITAXEL
     Dates: end: 20180119

REACTIONS (4)
  - Sepsis [None]
  - Decreased activity [None]
  - Neutrophil count decreased [None]
  - White blood cell count decreased [None]

NARRATIVE: CASE EVENT DATE: 20180316
